FAERS Safety Report 7040266-5 (Version None)
Quarter: 2010Q4

REPORT INFORMATION
  Report Type: 
  Country: None (occurrence: None)
  Receive Date: 20101012
  Receipt Date: 20101007
  Transmission Date: 20110411
  Serious: Yes (Death)
  Sender: FDA-Public Use
  Company Number: BR-PFIZER INC-2010128196

PATIENT
  Age: 79 Year
  Sex: Male
  Weight: 79.6 kg

DRUGS (4)
  1. *PREDNISONE [Suspect]
     Indication: PROSTATE CANCER
     Dosage: 5 MG, 2X/DAY
     Route: 048
     Dates: start: 20100420
  2. BLINDED *NO SUBJECT DRUG [Suspect]
     Indication: PROSTATE CANCER
     Dosage: 37.5 MG, DAILY
     Route: 048
     Dates: start: 20100420, end: 20100830
  3. BLINDED *PLACEBO [Suspect]
     Indication: PROSTATE CANCER
     Dosage: 37.5 MG, DAILY
     Route: 048
     Dates: start: 20100420, end: 20100830
  4. SUNITINIB MALATE [Suspect]
     Indication: PROSTATE CANCER
     Dosage: 37.5 MG, DAILY
     Route: 048
     Dates: start: 20100420, end: 20100830

REACTIONS (1)
  - DEATH [None]
